FAERS Safety Report 16446902 (Version 1)
Quarter: 2019Q2

REPORT INFORMATION
  Report Type: Report from Study
  Country: US (occurrence: US)
  Receive Date: 20190618
  Receipt Date: 20190618
  Transmission Date: 20190711
  Serious: Yes (Hospitalization, Other)
  Sender: FDA-Public Use
  Company Number: US-GILEAD-2019-0413880

PATIENT
  Age: 21 Year
  Sex: Male

DRUGS (11)
  1. PROPRANOLOL [Concomitant]
     Active Substance: PROPRANOLOL HYDROCHLORIDE
  2. SODIUM CHLORIDE. [Concomitant]
     Active Substance: SODIUM CHLORIDE
  3. AZTREONAM LYSINE [Suspect]
     Active Substance: AZTREONAM LYSINE
     Indication: CYSTIC FIBROSIS
     Dosage: 75 MG, TID
     Route: 055
     Dates: start: 20190606
  4. CHLOREX-A [Concomitant]
  5. PULMICORT TURBUHALER [Concomitant]
     Active Substance: BUDESONIDE
  6. ALBUTEROL HFA [Concomitant]
     Active Substance: ALBUTEROL SULFATE
  7. IBUPROFEN. [Concomitant]
     Active Substance: IBUPROFEN
  8. MUPIROCIN. [Concomitant]
     Active Substance: MUPIROCIN
  9. LEVETIRACETAM. [Concomitant]
     Active Substance: LEVETIRACETAM
  10. BACLOFEN. [Concomitant]
     Active Substance: BACLOFEN
  11. HYDROCODONE BITARTRATE AND ACETAMINOPHEN [Concomitant]
     Active Substance: ACETAMINOPHEN\HYDROCODONE BITARTRATE

REACTIONS (1)
  - Pneumonia [Unknown]

NARRATIVE: CASE EVENT DATE: 20190609
